FAERS Safety Report 6159738-0 (Version None)
Quarter: 2009Q2

REPORT INFORMATION
  Report Type: 
  Country: None (occurrence: None)
  Receive Date: 20090415
  Receipt Date: 20090401
  Transmission Date: 20091009
  Serious: Yes (Life-Threatening, Hospitalization)
  Sender: FDA-Public Use
  Company Number: 2009S1003562

PATIENT
  Age: 83 Year
  Sex: Female

DRUGS (17)
  1. ENALAPRIL MALEATE [Suspect]
     Indication: HYPERTENSION
     Dosage: 10 MG, TWICE A DAY;
  2. INSULIN ACTRAPID HUMAN (INSULIN HUMAN) [Suspect]
     Indication: DRUG USE FOR UNKNOWN INDICATION
     Dosage: SUBCUTANEOUS
     Route: 058
  3. PROTAPHANE MC (INSULIN) [Suspect]
     Indication: TYPE 2 DIABETES MELLITUS
     Dosage: 20 IU; SUBCUTANEOUS; DAILY
     Route: 058
  4. ACETYLCYSTEINE [Concomitant]
  5. ALLOPURINOL [Concomitant]
  6. BEROTEC [Concomitant]
  7. DIGITOXIN INJ [Concomitant]
  8. FALICARD (VERAPAMIL HYDROCHLORIDE) [Concomitant]
  9. FALITHROM (PHENPROCOUMON) [Concomitant]
  10. FUROSEMIDE [Concomitant]
  11. HYDROCHLOROTHIAZIDE [Concomitant]
  12. L-THYROXINE (LEVOTHYROXINE) [Concomitant]
  13. DIPYRONE TAB [Concomitant]
  14. OXIS TURBUHALER (FORMOTEROL FUMARATE) [Concomitant]
  15. SIMVASTATIN [Concomitant]
  16. SPIRIVA [Concomitant]
  17. TRAMADOLOR (TRAMADOL HYDROCHLORIDE) [Concomitant]

REACTIONS (2)
  - DRUG INTERACTION [None]
  - HYPOGLYCAEMIA [None]
